FAERS Safety Report 25140568 (Version 2)
Quarter: 2025Q1

REPORT INFORMATION
  Report Type: Report from Study
  Country: US (occurrence: US)
  Receive Date: 20250331
  Receipt Date: 20250331
  Transmission Date: 20250409
  Serious: Yes (Other)
  Sender: OTSUKA
  Company Number: US-MMM-Otsuka-BZ9XL2Y4

PATIENT

DRUGS (1)
  1. TOLVAPTAN [Suspect]
     Active Substance: TOLVAPTAN
     Indication: Congenital cystic kidney disease
     Route: 065
     Dates: start: 20241113

REACTIONS (2)
  - Oral surgery [Unknown]
  - Product use issue [Unknown]

NARRATIVE: CASE EVENT DATE: 20250210
